FAERS Safety Report 6069633-3 (Version None)
Quarter: 2009Q1

REPORT INFORMATION
  Report Type: 
  Country: None (occurrence: None)
  Receive Date: 20090209
  Receipt Date: 20090202
  Transmission Date: 20090719
  Serious: Yes (Other)
  Sender: FDA-Public Use
  Company Number: JP-BRISTOL-MYERS SQUIBB COMPANY-14369730

PATIENT
  Age: 63 Year
  Sex: Female

DRUGS (4)
  1. TAXOL [Suspect]
     Indication: BREAST CANCER
     Route: 041
     Dates: start: 20080912
  2. DECADRON [Suspect]
     Indication: PREMEDICATION
     Dosage: 8MG ON 12SEP-12SEP2008;4MG ON 19SEP-19SEP2008;2MG ON 26SEP-26SEP2008
     Route: 041
     Dates: start: 20081003, end: 20081013
  3. SIPSERON [Concomitant]
     Route: 048
  4. NIFESLOW [Concomitant]
     Route: 048

REACTIONS (1)
  - MACULAR OEDEMA [None]
